FAERS Safety Report 18250371 (Version 1)
Quarter: 2020Q3

REPORT INFORMATION
  Report Type: Report from Study
  Country: US (occurrence: US)
  Receive Date: 20200909
  Receipt Date: 20200909
  Transmission Date: 20201103
  Serious: Yes (Death)
  Sender: FDA-Public Use
  Company Number: US-ASTRAZENECA-2020SF15225

PATIENT
  Age: 28298 Day
  Sex: Male

DRUGS (4)
  1. ASPIRIN EC [Concomitant]
     Active Substance: ASPIRIN
  2. LAXATIVE [Concomitant]
     Active Substance: UNSPECIFIED INGREDIENT
  3. COMPAZINE [Concomitant]
     Active Substance: PROCHLORPERAZINE MALEATE
  4. LYNPARZA [Suspect]
     Active Substance: OLAPARIB
     Indication: OESOPHAGEAL CARCINOMA
     Route: 048
     Dates: start: 20200812

REACTIONS (1)
  - Death [Fatal]

NARRATIVE: CASE EVENT DATE: 20200830
